FAERS Safety Report 25536719 (Version 2)
Quarter: 2025Q3

REPORT INFORMATION
  Report Type: Report from Study
  Country: US (occurrence: US)
  Receive Date: 20250709
  Receipt Date: 20250809
  Transmission Date: 20251020
  Serious: Yes (Other)
  Sender: ALEXION PHARMACEUTICALS
  Company Number: US-AstraZeneca-CH-00904051A

PATIENT
  Sex: Male
  Weight: 70.748 kg

DRUGS (1)
  1. ACALABRUTINIB [Suspect]
     Active Substance: ACALABRUTINIB
     Indication: Chronic lymphocytic leukaemia
     Dosage: 100 MILLIGRAM, QD
     Dates: start: 20250627, end: 20250702

REACTIONS (3)
  - White blood cell count increased [Recovering/Resolving]
  - Ear haemorrhage [Recovering/Resolving]
  - Haemorrhage [Recovering/Resolving]
